FAERS Safety Report 8494658-8 (Version None)
Quarter: 2012Q3

REPORT INFORMATION
  Report Type: 
  Country: None (occurrence: None)
  Receive Date: 20120709
  Receipt Date: 20120702
  Transmission Date: 20120928
  Serious: Yes (Other)
  Sender: FDA-Public Use
  Company Number: PHHY2012GB056696

PATIENT
  Age: 31 Year
  Sex: Female

DRUGS (13)
  1. LAMOTRIGINE [Concomitant]
  2. PHENOBARBITAL TAB [Concomitant]
     Dosage: 60 MG, BID
  3. VIGABATRIN [Concomitant]
     Indication: TREMOR
  4. ZONISAMIDE [Concomitant]
  5. CLOBAZAM [Concomitant]
     Dosage: 10 MG, BID
  6. MIDAZOLAM [Concomitant]
  7. PHENYTOIN [Concomitant]
  8. LACOSAMIDE [Suspect]
     Dosage: 150 MG, BID
  9. PIRACETAM [Concomitant]
  10. TOPIRAMATE [Concomitant]
  11. LEVETIRACETAM [Suspect]
  12. PHENOBARBITAL [Concomitant]
  13. VALPROIC ACID [Concomitant]

REACTIONS (7)
  - GAIT DISTURBANCE [None]
  - TONIC CLONIC MOVEMENTS [None]
  - MOBILITY DECREASED [None]
  - GENERAL PHYSICAL HEALTH DETERIORATION [None]
  - PARTIAL SEIZURES [None]
  - DRUG INEFFECTIVE [None]
  - PROTRUSION TONGUE [None]
